FAERS Safety Report 23519715 (Version 1)
Quarter: 2024Q1

REPORT INFORMATION
  Report Type: Report from Study
  Country: CO (occurrence: CO)
  Receive Date: 20240213
  Receipt Date: 20240213
  Transmission Date: 20240409
  Serious: Yes (Hospitalization)
  Sender: FDA-Public Use
  Company Number: CO-ABBVIE-5637740

PATIENT
  Age: 67 Year
  Sex: Male
  Weight: 72 kg

DRUGS (2)
  1. VENCLEXTA [Suspect]
     Active Substance: VENETOCLAX
     Indication: Acute myeloid leukaemia
     Dosage: FORM STRENGTH 100 MILLIGRAM
     Route: 048
     Dates: start: 20220421, end: 20240120
  2. AZACITIDINE [Concomitant]
     Active Substance: AZACITIDINE
     Indication: Acute myeloid leukaemia
     Dosage: APPLICATION FOR 5 DAYS EVERY 30 DAYS
     Route: 058
     Dates: start: 2022, end: 20240119

REACTIONS (2)
  - Pain [Not Recovered/Not Resolved]
  - Acute myeloid leukaemia recurrent [Recovering/Resolving]

NARRATIVE: CASE EVENT DATE: 20240101
